FAERS Safety Report 7965766-2 (Version None)
Quarter: 2011Q4

REPORT INFORMATION
  Report Type: 
  Country: None (occurrence: None)
  Receive Date: 20111208
  Receipt Date: 20111128
  Transmission Date: 20120403
  Serious: Yes (Other)
  Sender: FDA-Public Use
  Company Number: US-ELI_LILLY_AND_COMPANY-US201112000328

PATIENT
  Sex: Female

DRUGS (2)
  1. LANTUS [Concomitant]
     Dosage: UNK
  2. HUMALOG [Suspect]
     Indication: TYPE 1 DIABETES MELLITUS
     Dosage: UNK, OTHER

REACTIONS (3)
  - CATARACT [None]
  - GLAUCOMA [None]
  - ANEURYSM [None]
